FAERS Safety Report 21468840 (Version 1)
Quarter: 2022Q4

REPORT INFORMATION
  Report Type: Spontaneous
  Country: US (occurrence: US)
  Receive Date: 20221018
  Receipt Date: 20221018
  Transmission Date: 20230113
  Serious: No
  Sender: FDA-Public Use
  Company Number: US-LUPIN PHARMACEUTICALS INC.-2022-12020

PATIENT
  Age: 33 Year
  Sex: Male

DRUGS (5)
  1. GABAPENTIN [Suspect]
     Active Substance: GABAPENTIN
     Indication: Prophylaxis
     Dosage: 600 MG
     Route: 065
  2. GABAPENTIN [Suspect]
     Active Substance: GABAPENTIN
     Indication: Withdrawal syndrome
  3. GABAPENTIN [Suspect]
     Active Substance: GABAPENTIN
     Indication: Evidence based treatment
  4. CLONIDINE [Suspect]
     Active Substance: CLONIDINE
     Indication: Prophylaxis
     Dosage: 0.2 MG
     Route: 048
  5. NALOXONE [Suspect]
     Active Substance: NALOXONE
     Indication: Drug use disorder
     Dosage: 4 MG
     Route: 045

REACTIONS (1)
  - Intentional product misuse [Unknown]
